APPROVED DRUG PRODUCT: INDICLOR
Active Ingredient: INDIUM IN-111 CHLORIDE
Strength: 2mCi/0.2ML
Dosage Form/Route: INJECTABLE;INJECTION
Application: N019862 | Product #001
Applicant: GE HEALTHCARE
Approved: Dec 29, 1992 | RLD: Yes | RS: No | Type: DISCN